FAERS Safety Report 4588401-2 (Version None)
Quarter: 2005Q1

REPORT INFORMATION
  Report Type: 
  Country: None (occurrence: None)
  Receive Date: 20050216
  Receipt Date: 20050216
  Transmission Date: 20050727
  Serious: Yes (Life-Threatening, Hospitalization)
  Sender: FDA-Public Use
  Company Number: None

PATIENT
  Age: 73 Year
  Sex: Female

DRUGS (3)
  1. HEPARIN [Suspect]
     Indication: PROPHYLAXIS
     Dosage: 5000 U SQ BID
     Route: 058
  2. HEPARIN [Suspect]
     Indication: PULMONARY EMBOLISM
     Dosage: 5000 U SQ BID
     Route: 058
  3. HEPARIN [Suspect]
     Indication: THROMBOSIS PROPHYLAXIS
     Dosage: 5000 U SQ BID
     Route: 058

REACTIONS (1)
  - HEPARIN-INDUCED THROMBOCYTOPENIA [None]
